FAERS Safety Report 9680774 (Version 1)
Quarter: 2013Q4

REPORT INFORMATION
  Report Type: Spontaneous
  Country: US (occurrence: None)
  Receive Date: 20131108
  Receipt Date: 20131108
  Transmission Date: 20140711
  Serious: Yes (Other)
  Sender: FDA-Public Use
  Company Number: None

PATIENT
  Sex: Male

DRUGS (1)
  1. SEROQUEL [Suspect]
     Indication: BACK PAIN
     Route: 048

REACTIONS (4)
  - Mood swings [None]
  - Abnormal behaviour [None]
  - Condition aggravated [None]
  - Irritability [None]
